FAERS Safety Report 19880031 (Version 1)
Quarter: 2021Q3

REPORT INFORMATION
  Report Type: Spontaneous
  Country: BE (occurrence: BE)
  Receive Date: 20210924
  Receipt Date: 20210924
  Transmission Date: 20211014
  Serious: Yes (Life-Threatening, Other)
  Sender: FDA-Public Use
  Company Number: BE-MYLANLABS-2021M1065929

PATIENT
  Age: 69 Year
  Sex: Female
  Weight: 122 kg

DRUGS (5)
  1. FLUCONAZOLE. [Suspect]
     Active Substance: FLUCONAZOLE
     Indication: CANDIDA INFECTION
     Dosage: 400 MG, 1X/DAY (FROM DAY 4 TO DAY 10)
     Route: 065
  2. AMPHOTERICIN B. [Concomitant]
     Active Substance: AMPHOTERICIN B
     Indication: CANDIDA INFECTION
     Dosage: UNK
     Route: 065
  3. FLUCONAZOLE. [Suspect]
     Active Substance: FLUCONAZOLE
     Dosage: 800 MG, 1X/DAY
     Route: 065
  4. AMOXICILLIN CLAVULANIC ACID [Concomitant]
     Active Substance: AMOXICILLIN\CLAVULANIC ACID
     Indication: ANTIBIOTIC THERAPY
     Dosage: 6 GRAM, QD, (2 G, 3X/DAY)
     Route: 065
  5. AMIKACINE                          /00391001/ [Concomitant]
     Active Substance: AMIKACIN
     Indication: ANTIBIOTIC THERAPY
     Dosage: 1.500 MG, 1X/DAY
     Route: 065

REACTIONS (1)
  - Pathogen resistance [Recovered/Resolved]
